FAERS Safety Report 9666559 (Version 1)
Quarter: 2013Q4

REPORT INFORMATION
  Report Type: Spontaneous
  Country: US (occurrence: US)
  Receive Date: 20131104
  Receipt Date: 20131104
  Transmission Date: 20140711
  Serious: No
  Sender: FDA-Public Use
  Company Number: US-TEVA-442015USA

PATIENT
  Age: 57 Year
  Sex: Male

DRUGS (7)
  1. AZILECT [Suspect]
     Indication: PARKINSON^S DISEASE
  2. EFFEXOR [Concomitant]
     Indication: DEPRESSION
  3. LOVASTATIN [Concomitant]
     Indication: HYPERCHOLESTEROLAEMIA
  4. AMANTADINE [Concomitant]
     Indication: PARKINSON^S DISEASE
     Dosage: 200 MILLIGRAM DAILY;
  5. REMERON [Concomitant]
     Indication: SLEEP DISORDER
     Dosage: BEDTIME
  6. CLONAZEPAM [Concomitant]
     Indication: SLEEP DISORDER
     Dosage: BEDTIME
     Route: 048
  7. ASPIRIN [Concomitant]
     Indication: PROPHYLAXIS
     Dosage: 81 MILLIGRAM DAILY;

REACTIONS (2)
  - Dizziness [Not Recovered/Not Resolved]
  - Hypersomnia [Not Recovered/Not Resolved]
